FAERS Safety Report 18148312 (Version 1)
Quarter: 2020Q3

REPORT INFORMATION
  Report Type: Spontaneous
  Country: US (occurrence: US)
  Receive Date: 20200813
  Receipt Date: 20200813
  Transmission Date: 20201103
  Serious: No
  Sender: FDA-Public Use
  Company Number: US-JNJFOC-20200811949

PATIENT
  Age: 32 Year
  Sex: Female

DRUGS (1)
  1. REMICADE [Suspect]
     Active Substance: INFLIXIMAB
     Indication: RHEUMATOID ARTHRITIS
     Dosage: 200 MG TITRATED FORMULA TO BE INFUSED OVER 2 HOURS
     Route: 042

REACTIONS (5)
  - Muscle spasms [Unknown]
  - Infusion related reaction [Unknown]
  - Nausea [Unknown]
  - Vomiting [Unknown]
  - Underdose [Unknown]

NARRATIVE: CASE EVENT DATE: 20200806
